FAERS Safety Report 9938559 (Version 2)
Quarter: 2014Q2

REPORT INFORMATION
  Report Type: Spontaneous
  Country: JP (occurrence: JP)
  Receive Date: 20140303
  Receipt Date: 20140522
  Transmission Date: 20141212
  Serious: Yes (Death, Other)
  Sender: FDA-Public Use
  Company Number: JP-JNJFOC-20140218497

PATIENT
  Sex: Female

DRUGS (2)
  1. DUROTEP MT [Suspect]
     Indication: PAIN
     Route: 062
  2. TRAMCET [Suspect]
     Indication: PAIN
     Dosage: 3 DOSES 1 PER 1 DAY
     Route: 048

REACTIONS (3)
  - Death [Fatal]
  - Blood pressure decreased [Unknown]
  - Wrong technique in drug usage process [Unknown]
